FAERS Safety Report 17722145 (Version 2)
Quarter: 2020Q3

REPORT INFORMATION
  Report Type: Report from Study
  Country: None (occurrence: US)
  Receive Date: 20200429
  Receipt Date: 20200702
  Transmission Date: 20201102
  Serious: Yes (Hospitalization)
  Sender: FDA-Public Use
  Company Number: US-INSMED, INC.-US-INS-20-00563

PATIENT
  Age: 73 Year
  Sex: Female

DRUGS (3)
  1. ARIKAYCE [Suspect]
     Active Substance: AMIKACIN
     Indication: MYCOBACTERIAL INFECTION
     Route: 055
     Dates: start: 202002, end: 20200308
  2. LAMIRA NEBULIZER SYSTEM [Suspect]
     Active Substance: DEVICE
  3. ARIKAYCE [Suspect]
     Active Substance: AMIKACIN
     Route: 055
     Dates: start: 202003, end: 202003

REACTIONS (11)
  - Hospitalisation [Unknown]
  - Asthenia [Unknown]
  - Weight decreased [Unknown]
  - Feeling of body temperature change [Unknown]
  - Dyspnoea [Unknown]
  - Lethargy [Unknown]
  - Decreased appetite [Unknown]
  - Nausea [Unknown]
  - Chills [Unknown]
  - Fatigue [Unknown]
  - Malaise [Unknown]

NARRATIVE: CASE EVENT DATE: 2020
